FAERS Safety Report 26212384 (Version 1)
Quarter: 2025Q4

REPORT INFORMATION
  Report Type: Report from Study
  Country: JP (occurrence: JP)
  Receive Date: 20251230
  Receipt Date: 20251230
  Transmission Date: 20260118
  Serious: Yes (Other)
  Sender: ROCHE
  Company Number: JP-ROCHE-10000471681

PATIENT
  Sex: Male

DRUGS (1)
  1. EMICIZUMAB [Suspect]
     Active Substance: EMICIZUMAB
     Indication: Factor VIII deficiency
     Route: 058

REACTIONS (3)
  - Extradural haematoma [Recovering/Resolving]
  - Subdural haematoma [Recovering/Resolving]
  - Lacunar infarction [Not Recovered/Not Resolved]
